FAERS Safety Report 9123702 (Version 1)
Quarter: 2013Q1

REPORT INFORMATION
  Report Type: Spontaneous
  Country: BR (occurrence: BR)
  Receive Date: 20130115
  Receipt Date: 20130115
  Transmission Date: 20140127
  Serious: Yes (Other)
  Sender: FDA-Public Use
  Company Number: PHHY2012BR115560

PATIENT
  Sex: Female
  Weight: 64 kg

DRUGS (6)
  1. DIOVAN TRIPLE [Suspect]
     Indication: CARDIAC DISORDER
     Dosage: 0.5 DF, AFTER BREAKFAST(160 MG VALS, 10 MG AMLO, 12.5 MG HCTZ)
     Route: 048
     Dates: start: 2002
  2. GALVUS MET [Suspect]
     Indication: DIABETES MELLITUS
     Dosage: 1 DF, AFTER DINNER (500 MG METF AND 50 MG VILD)
     Route: 048
     Dates: start: 2010
  3. ASPIRINA PREVENT [Concomitant]
     Indication: INFARCTION
     Dosage: 100 MG, UNK
  4. OMEPRAZOLE [Concomitant]
     Indication: GASTRIC DISORDER
     Dosage: 20 MG, DAILY
     Route: 048
  5. OMEPRAZOLE [Concomitant]
     Dosage: 2 DF (20MG) DAILY
     Route: 048
     Dates: start: 20130108
  6. PROCORALAN [Concomitant]
     Indication: CORONARY ARTERY DISEASE
     Dosage: 1 DF, BID
     Route: 048
     Dates: start: 201212

REACTIONS (5)
  - Arterial occlusive disease [Unknown]
  - Osteoporosis [Not Recovered/Not Resolved]
  - Blood cholesterol abnormal [Unknown]
  - Gastrooesophageal reflux disease [Not Recovered/Not Resolved]
  - Gastric disorder [Not Recovered/Not Resolved]
